FAERS Safety Report 16852823 (Version 1)
Quarter: 2019Q3

REPORT INFORMATION
  Report Type: Report from Study
  Country: US (occurrence: US)
  Receive Date: 20190925
  Receipt Date: 20190925
  Transmission Date: 20191005
  Serious: No
  Sender: FDA-Public Use
  Company Number: US-ALEXION PHARMACEUTICALS INC.-A201914116

PATIENT
  Sex: Male

DRUGS (1)
  1. SOLIRIS [Suspect]
     Active Substance: ECULIZUMAB
     Indication: MYASTHENIA GRAVIS
     Route: 065

REACTIONS (6)
  - Jaw disorder [Unknown]
  - Eye irritation [Unknown]
  - Asthenia [Unknown]
  - Secretion discharge [Unknown]
  - Photophobia [Unknown]
  - Foot fracture [Unknown]
